FAERS Safety Report 6254225-3 (Version None)
Quarter: 2009Q2

REPORT INFORMATION
  Report Type: 
  Country: None (occurrence: None)
  Receive Date: 20090630
  Receipt Date: 20090630
  Transmission Date: 20091009
  Serious: No
  Sender: FDA-Public Use
  Company Number: None

PATIENT
  Age: 57 Year
  Sex: Female
  Weight: 55.7924 kg

DRUGS (1)
  1. LAMISIL [Suspect]
     Indication: ONYCHOMYCOSIS
     Dosage: ONE TABLET EVERY DAY PO
     Route: 048
     Dates: start: 20090616, end: 20090627

REACTIONS (4)
  - HYPOPHAGIA [None]
  - PAIN [None]
  - STOMATITIS [None]
  - TONGUE ULCERATION [None]
